FAERS Safety Report 12959494 (Version 1)
Quarter: 2016Q4

REPORT INFORMATION
  Report Type: Spontaneous
  Country: US (occurrence: US)
  Receive Date: 20161121
  Receipt Date: 20161121
  Transmission Date: 20170207
  Serious: Yes (Hospitalization)
  Sender: FDA-Public Use
  Company Number: US-VANDA PHARMACEUTICALS, INC-2016TASUS001421

PATIENT
  Age: 72 Year
  Sex: Male

DRUGS (1)
  1. HETLIOZ [Suspect]
     Active Substance: TASIMELTEON
     Indication: NON-24-HOUR SLEEP-WAKE DISORDER
     Dosage: 20 MG, QD
     Route: 048
     Dates: start: 20140801

REACTIONS (6)
  - Fall [Unknown]
  - Dizziness postural [Unknown]
  - Memory impairment [Unknown]
  - Head injury [Unknown]
  - Blood glucose fluctuation [Unknown]
  - Abasia [Unknown]

NARRATIVE: CASE EVENT DATE: 201608
